FAERS Safety Report 5292662-4 (Version None)
Quarter: 2007Q2

REPORT INFORMATION
  Report Type: 
  Country: None (occurrence: None)
  Receive Date: 20070404
  Receipt Date: 20070321
  Transmission Date: 20071010
  Serious: Yes (Death)
  Sender: FDA-Public Use
  Company Number: HECT-10212

PATIENT
  Age: 47 Year
  Sex: Male

DRUGS (2)
  1. HECTOROL [Suspect]
     Indication: HYPERPARATHYROIDISM SECONDARY
     Dosage: 4 MCG 2X/W IV
     Route: 042
  2. MULTIPLE MEDICATIONS (UNSPECIFIED) [Concomitant]

REACTIONS (1)
  - ARRHYTHMIA [None]
